FAERS Safety Report 18011521 (Version 8)
Quarter: 2020Q4

REPORT INFORMATION
  Report Type: Spontaneous
  Country: NZ (occurrence: NZ)
  Receive Date: 20200713
  Receipt Date: 20201210
  Transmission Date: 20210113
  Serious: Yes (Death, Hospitalization)
  Sender: FDA-Public Use
  Company Number: NZ-ABBVIE-20K-118-3478767-00

PATIENT
  Age: 69 Year
  Sex: Male

DRUGS (29)
  1. ZINC + CASTOR OIL [Concomitant]
     Indication: PRODUCT USED FOR UNKNOWN INDICATION
     Dosage: CASTOR OIL 50% (500 MG/G) +ZINC OXIDE 7.5% (75 MG/G)?AS REQUIRED
  2. OXYCODONE HYDROCHLORIDE. [Concomitant]
     Active Substance: OXYCODONE HYDROCHLORIDE
     Indication: PRODUCT USED FOR UNKNOWN INDICATION
     Dosage: 5 MG/5 ML?2.5 TO 5 MG EVERY 2 HOURS WHEN REQUIRED
     Route: 048
  3. MIDAZOLAM. [Concomitant]
     Active Substance: MIDAZOLAM
     Indication: PRODUCT USED FOR UNKNOWN INDICATION
     Dosage: AS REQUIRED
  4. LOPERAMIDE HYDROCHLORIDE. [Concomitant]
     Active Substance: LOPERAMIDE HYDROCHLORIDE
     Indication: PRODUCT USED FOR UNKNOWN INDICATION
  5. GABAPENTIN. [Concomitant]
     Active Substance: GABAPENTIN
     Indication: PRODUCT USED FOR UNKNOWN INDICATION
  6. TEMAZEPAM. [Concomitant]
     Active Substance: TEMAZEPAM
     Indication: PRODUCT USED FOR UNKNOWN INDICATION
  7. QUETAPEL [Concomitant]
     Indication: PRODUCT USED FOR UNKNOWN INDICATION
     Dosage: 0800 AND 2100
  8. MOLAXOLE [Concomitant]
     Active Substance: POLYETHYLENE GLYCOL 3350\POTASSIUM CHLORIDE\SODIUM BICARBONATE\SODIUM CHLORIDE
     Indication: PRODUCT USED FOR UNKNOWN INDICATION
     Dosage: 1 SACHET?MOLAXOLE POWDER FOR ORAL SOLUTION SACHET
     Route: 048
  9. DOCUSATE SODIUM. [Concomitant]
     Active Substance: DOCUSATE SODIUM
     Indication: PRODUCT USED FOR UNKNOWN INDICATION
  10. LORATADINE. [Concomitant]
     Active Substance: LORATADINE
     Indication: PRODUCT USED FOR UNKNOWN INDICATION
  11. LAXSOL [Concomitant]
     Active Substance: DOCUSATE SODIUM\SENNOSIDES A AND B
     Indication: PRODUCT USED FOR UNKNOWN INDICATION
     Dosage: 2 TABLETS(DOCUSATE SODIUM 50 MG + SENNOSIDE B 8 MG)0800; 1700; EXTRA 2 TABLET AS REQUIRED
  12. APO-GABAPENTIN [Concomitant]
     Active Substance: GABAPENTIN
     Indication: PRODUCT USED FOR UNKNOWN INDICATION
  13. LORAFIX [Concomitant]
     Indication: PRODUCT USED FOR UNKNOWN INDICATION
     Dosage: ONCE A DAY AS REQUIRED
  14. DUODOPA [Suspect]
     Active Substance: CARBIDOPA\LEVODOPA
     Indication: PARKINSON^S DISEASE
     Dosage: 20 MG/ML 5 MG/ML 100 ML?DAILY FROM 6 AM TO 10 PM
     Route: 050
     Dates: start: 2009, end: 2020
  15. DUODOPA [Suspect]
     Active Substance: CARBIDOPA\LEVODOPA
     Dosage: 7.7 ML BOLUS 6 AM START,INFUSION DAILY 5.5 ML/HR 6 AM TO 10 PM; ML BOLUS PRN,1 HR LOCKOUT
     Route: 050
  16. CETOMACROGOL;GLYCEROL [Concomitant]
     Indication: DRY SKIN
     Dosage: ETOMACROGOL AQUEOUS CREAM 90% (900 MG/G) +GLYCEROL 10% (100 MG/G) AS REQUIRED
  17. HYDROCORTISONE BUTYRATE. [Concomitant]
     Active Substance: HYDROCORTISONE BUTYRATE
     Indication: PRODUCT USED FOR UNKNOWN INDICATION
     Dosage: TWICE DAILY WHEN REQUIRED
  18. CETOMACROGOL 1000 [Concomitant]
     Active Substance: COSMETICS
     Indication: PRODUCT USED FOR UNKNOWN INDICATION
  19. PARACETAMOL [Concomitant]
     Active Substance: ACETAMINOPHEN
     Indication: PRODUCT USED FOR UNKNOWN INDICATION
     Dosage: 0800; 1200; 1700; 2100
     Dates: end: 2020
  20. PARACETAMOL [Concomitant]
     Active Substance: ACETAMINOPHEN
     Dosage: 2 TAB UP TO FOUR TIMES DAILY AS NEEDED
  21. OMEPRAZOLE. [Concomitant]
     Active Substance: OMEPRAZOLE
     Indication: PRODUCT USED FOR UNKNOWN INDICATION
     Dosage: AT 0800 AND 1700
  22. DIAMIDE [Concomitant]
     Indication: PRODUCT USED FOR UNKNOWN INDICATION
     Dosage: 3 TIMES A DAY AS REQUIRED
  23. ATIVAN [Concomitant]
     Active Substance: LORAZEPAM
     Indication: PRODUCT USED FOR UNKNOWN INDICATION
  24. COLECALCIFEROL [Concomitant]
     Active Substance: CHOLECALCIFEROL
     Indication: PRODUCT USED FOR UNKNOWN INDICATION
  25. MIDAZOLAM. [Concomitant]
     Active Substance: MIDAZOLAM
     Dosage: EVERY 1 HOUR AS REQUIRED
  26. QUETIAPINE FUMARATE. [Concomitant]
     Active Substance: QUETIAPINE FUMARATE
     Indication: PRODUCT USED FOR UNKNOWN INDICATION
  27. LAXSOL [Concomitant]
     Active Substance: DOCUSATE SODIUM\SENNOSIDES A AND B
     Dosage: 2 TABS TWICE A DAY WHEN REQUIRED
  28. DOMPERIDONE [Concomitant]
     Active Substance: DOMPERIDONE
     Indication: PRODUCT USED FOR UNKNOWN INDICATION
     Dosage: AT 0730, 1130, 1630
  29. NORMISON [Concomitant]
     Indication: PRODUCT USED FOR UNKNOWN INDICATION
     Dosage: AT NIGHT AS REQUIRED

REACTIONS (34)
  - Chills [Unknown]
  - Pain in extremity [Unknown]
  - Speech disorder [Unknown]
  - Pain [Unknown]
  - Hyperhidrosis [Unknown]
  - Productive cough [Unknown]
  - Neutrophil count increased [Unknown]
  - Dyspnoea [Unknown]
  - Blood lactic acid increased [Unknown]
  - Immature granulocyte count increased [Unknown]
  - Blood thyroid stimulating hormone increased [Unknown]
  - Somnolence [Unknown]
  - Blood potassium increased [Unknown]
  - Slow speech [Unknown]
  - Parkinson^s disease [Fatal]
  - Pallor [Unknown]
  - Platelet count increased [Unknown]
  - Monocyte count increased [Unknown]
  - Pyrexia [Unknown]
  - Pneumonia aspiration [Fatal]
  - Malaise [Fatal]
  - Blood creatinine increased [Unknown]
  - Inflammatory marker increased [Unknown]
  - Blood sodium increased [Unknown]
  - Arthralgia [Unknown]
  - White blood cell count increased [Unknown]
  - Dysphagia [Unknown]
  - Hunger [Unknown]
  - Thirst [Unknown]
  - Nausea [Unknown]
  - Food intolerance [Unknown]
  - C-reactive protein increased [Unknown]
  - Base excess increased [Unknown]
  - Vomiting [Unknown]

NARRATIVE: CASE EVENT DATE: 2020
